FAERS Safety Report 12578480 (Version 1)
Quarter: 2016Q3

REPORT INFORMATION
  Report Type: Spontaneous
  Country: JP (occurrence: JP)
  Receive Date: 20160721
  Receipt Date: 20160721
  Transmission Date: 20161109
  Serious: Yes (Hospitalization, Other)
  Sender: FDA-Public Use
  Company Number: JP-PAR PHARMACEUTICAL COMPANIES-2016SCPR015645

PATIENT

DRUGS (3)
  1. FLUNITRAZEPAM [Suspect]
     Active Substance: FLUNITRAZEPAM
     Indication: SCHIZOPHRENIA
     Dosage: 2 MG, DAILY
     Route: 065
     Dates: start: 201305, end: 201402
  2. OLANZAPINE. [Suspect]
     Active Substance: OLANZAPINE
     Indication: SCHIZOPHRENIA
     Dosage: 5 MG, DAILY
     Route: 065
     Dates: start: 201305, end: 201402
  3. SODIUM VALPROATE [Suspect]
     Active Substance: VALPROATE SODIUM
     Indication: SCHIZOPHRENIA
     Dosage: 400 MG, DAILY
     Route: 065
     Dates: start: 201305, end: 201402

REACTIONS (4)
  - Pneumonia aspiration [Recovered/Resolved]
  - Hypothermia [Recovered/Resolved]
  - Neuroleptic malignant syndrome [Recovered/Resolved]
  - Rhabdomyolysis [Recovered/Resolved]

NARRATIVE: CASE EVENT DATE: 2014
